FAERS Safety Report 8230673-7 (Version None)
Quarter: 2012Q1

REPORT INFORMATION
  Report Type: 
  Country: None (occurrence: None)
  Receive Date: 20120323
  Receipt Date: 20120319
  Transmission Date: 20120608
  Serious: Yes (Life-Threatening)
  Sender: FDA-Public Use
  Company Number: DE-ASTELLAS-2012EU002054

PATIENT
  Sex: Female
  Weight: 74 kg

DRUGS (11)
  1. MICAFUNGIN INJECTION [Suspect]
     Indication: CANDIDIASIS
     Dosage: 100 MG, UID/QD
     Route: 042
     Dates: end: 20120314
  2. CERNEVIT-12 [Concomitant]
     Dosage: UNK
     Route: 042
     Dates: start: 20120225, end: 20120316
  3. LIPOFUNDIN [Concomitant]
     Dosage: UNK
     Route: 065
     Dates: start: 20120225, end: 20120308
  4. STEROFUNDIN [Concomitant]
     Dosage: 1000 ML, UNKNOWN/D
     Route: 042
     Dates: start: 20120223, end: 20120316
  5. CISATRACURIUM BESYLATE [Concomitant]
     Dosage: 10 MG, UNKNOWN/D
     Route: 042
     Dates: start: 20120310, end: 20120310
  6. ENOXAPARIN SODIUM [Concomitant]
     Dosage: 40 MG, UNKNOWN/D
     Route: 058
     Dates: start: 20120226, end: 20120308
  7. PREDNISONE TAB [Concomitant]
     Dosage: 10 MG, UNKNOWN/D
     Route: 048
     Dates: start: 20120306, end: 20120310
  8. SCOPOLAMINE [Concomitant]
     Dosage: 20 MG, UNKNOWN/D
     Route: 042
     Dates: start: 20120227, end: 20120227
  9. LORAZEPAM [Concomitant]
     Dosage: 1 MG, UNKNOWN/D
     Route: 048
     Dates: start: 20120227, end: 20120227
  10. MORPHINE [Concomitant]
     Dosage: 5 MG, UNKNOWN/D
     Route: 058
     Dates: start: 20120225, end: 20120227
  11. METOPROLOL SUCCINATE [Concomitant]
     Dosage: 2 MG, UNKNOWN/D
     Route: 042
     Dates: start: 20120223, end: 20120223

REACTIONS (1)
  - COLITIS ULCERATIVE [None]
